FAERS Safety Report 9013666 (Version 1)
Quarter: 2013Q1

REPORT INFORMATION
  Report Type: Spontaneous
  Country: US (occurrence: US)
  Receive Date: 20130115
  Receipt Date: 20130115
  Transmission Date: 20140127
  Serious: Yes (Other)
  Sender: FDA-Public Use
  Company Number: PHEH2013US001168

PATIENT
  Sex: Male
  Weight: 91.16 kg

DRUGS (11)
  1. ZOMETA [Suspect]
     Indication: PLASMA CELL MYELOMA
     Dosage: UNK UKN, UNK
  2. VITAMIN D [Concomitant]
     Dosage: UNK UKN, UNK
  3. VELCADE [Concomitant]
     Dosage: UNK UKN, UNK
  4. TERAZOSIN [Concomitant]
     Dosage: UNK UKN, UNK
  5. ALLOPURINOL [Concomitant]
     Dosage: UNK UKN, UNK
  6. LIPITOR [Concomitant]
     Dosage: UNK UKN, UNK
  7. ASA [Concomitant]
     Dosage: UNK UKN, UNK
  8. LANTUS [Concomitant]
     Dosage: UNK UKN, UNK
  9. CHLORTHALIDONE [Concomitant]
     Dosage: UNK UKN, UNK
  10. DILAUDID [Concomitant]
     Dosage: UNK UKN, UNK
  11. HUMALOG [Concomitant]
     Dosage: UNK UKN, UNK

REACTIONS (1)
  - Renal disorder [Unknown]
